FAERS Safety Report 5275820-4 (Version None)
Quarter: 2007Q1

REPORT INFORMATION
  Report Type: 
  Country: None (occurrence: None)
  Receive Date: 20070326
  Receipt Date: 20070315
  Transmission Date: 20070707
  Serious: Yes (Death, Congenital Anomaly)
  Sender: FDA-Public Use
  Company Number: AUWYE052116MAR07

PATIENT

DRUGS (1)
  1. EFFEXOR XR [Suspect]
     Route: 064

REACTIONS (5)
  - CARDIAC ARREST NEONATAL [None]
  - DEATH NEONATAL [None]
  - DRUG EXPOSURE DURING PREGNANCY [None]
  - HEART DISEASE CONGENITAL [None]
  - NEONATAL RESPIRATORY ARREST [None]
